FAERS Safety Report 18853123 (Version 1)
Quarter: 2021Q1

REPORT INFORMATION
  Report Type: Spontaneous
  Country: US (occurrence: US)
  Receive Date: 20210205
  Receipt Date: 20210205
  Transmission Date: 20210420
  Serious: Yes (Other)
  Sender: FDA-Public Use
  Company Number: US-STRIDES ARCOLAB LIMITED-2021SP001389

PATIENT
  Sex: Male

DRUGS (2)
  1. HYDROCORTISONE. [Suspect]
     Active Substance: HYDROCORTISONE
     Indication: HYPOTHALAMO-PITUITARY DISORDER
     Dosage: UNK, HYDROCORTISONE TABLETS
     Route: 065
  2. HYDROCORTISONE. [Suspect]
     Active Substance: HYDROCORTISONE
     Indication: ENDOCRINE DISORDER
     Dosage: UNK, VENSUN PHARMA HYDROCORTISONE, 5MG TABLETS
     Route: 065
     Dates: start: 20200104, end: 20200107

REACTIONS (4)
  - Headache [Unknown]
  - Drug ineffective [Unknown]
  - Angina pectoris [Recovered/Resolved]
  - Constipation [Not Recovered/Not Resolved]

NARRATIVE: CASE EVENT DATE: 20200106
